FAERS Safety Report 20263511 (Version 1)
Quarter: 2021Q4

REPORT INFORMATION
  Report Type: Report from Study
  Country: AU (occurrence: NZ)
  Receive Date: 20211231
  Receipt Date: 20211231
  Transmission Date: 20220303
  Serious: Yes (Hospitalization)
  Sender: FDA-Public Use
  Company Number: AU-BIOGEN-2021BI01037885

PATIENT
  Age: 31 Year
  Sex: Female

DRUGS (1)
  1. TECFIDERA [Suspect]
     Active Substance: DIMETHYL FUMARATE
     Indication: Relapsing-remitting multiple sclerosis
     Route: 048
     Dates: start: 20200103, end: 20210421

REACTIONS (3)
  - Prolonged pregnancy [Recovered/Resolved]
  - Foetal heart rate acceleration abnormality [Recovered/Resolved]
  - Maternal exposure during pregnancy [Recovered/Resolved]

NARRATIVE: CASE EVENT DATE: 20210301
